FAERS Safety Report 16856492 (Version 2)
Quarter: 2019Q4

REPORT INFORMATION
  Report Type: Spontaneous
  Country: US (occurrence: US)
  Receive Date: 20190926
  Receipt Date: 20191001
  Transmission Date: 20200122
  Serious: No
  Sender: FDA-Public Use
  Company Number: US-PFIZER INC-2019247430

PATIENT
  Age: 2 Year
  Sex: Male

DRUGS (5)
  1. GENOTROPIN [Suspect]
     Active Substance: SOMATROPIN
     Indication: BODY HEIGHT BELOW NORMAL
     Dosage: 0.3 MG, DAILY
  2. GENOTROPIN [Suspect]
     Active Substance: SOMATROPIN
     Indication: SEIZURE
  3. GENOTROPIN [Suspect]
     Active Substance: SOMATROPIN
     Indication: INTESTINAL PERFORATION
  4. GENOTROPIN [Suspect]
     Active Substance: SOMATROPIN
     Indication: HYPOXIC-ISCHAEMIC ENCEPHALOPATHY
     Dosage: 0.7 MG, DAILY
  5. GENOTROPIN [Suspect]
     Active Substance: SOMATROPIN
     Indication: RENAL FAILURE

REACTIONS (2)
  - Off label use [Unknown]
  - Product use in unapproved indication [Unknown]
